FAERS Safety Report 19651062 (Version 1)
Quarter: 2021Q3

REPORT INFORMATION
  Report Type: Report from Study
  Country: IT (occurrence: IT)
  Receive Date: 20210803
  Receipt Date: 20210803
  Transmission Date: 20211014
  Serious: Yes (Hospitalization)
  Sender: FDA-Public Use
  Company Number: IT-TEVA-2021-IT-1938635

PATIENT
  Age: 85 Year
  Sex: Male

DRUGS (7)
  1. CLOPIDOGREL [Suspect]
     Active Substance: CLOPIDOGREL BISULFATE
     Dosage: 1DF
     Route: 048
     Dates: start: 20210101, end: 20210511
  2. URBASON 4 MG COMPRESSE [Concomitant]
     Active Substance: METHYLPREDNISOLONE
  3. LASIX [Concomitant]
     Active Substance: FUROSEMIDE
     Dosage: 3DF
  4. XATRAL 10 MG COMPRESSE A RILASCIO PROLUNGATO [Concomitant]
     Dosage: EXTENDED RELEASE TABLETS
  5. PANTOFIR 20 MG COMPRESSE GASTRORESISTENTI [Concomitant]
  6. BIVIS 20 MG/5 MG COMPRESSE RIVESTITE CON FILM [Concomitant]
  7. BISOPROLOL HEMIFUMARATE [Concomitant]
     Active Substance: BISOPROLOL FUMARATE
     Dosage: 2.5MG

REACTIONS (1)
  - Rectal haemorrhage [Not Recovered/Not Resolved]

NARRATIVE: CASE EVENT DATE: 20210511
